FAERS Safety Report 5837492-7 (Version None)
Quarter: 2008Q3

REPORT INFORMATION
  Report Type: 
  Country: None (occurrence: None)
  Receive Date: 20080807
  Receipt Date: 20080801
  Transmission Date: 20090109
  Serious: No
  Sender: FDA-Public Use
  Company Number: US-BOEHRINGER INGELHEIM GMBH, GERMANY-2008-BP-11037BP

PATIENT
  Age: 77 Year
  Sex: Male

DRUGS (6)
  1. COMBIVENT [Suspect]
     Indication: CHRONIC OBSTRUCTIVE PULMONARY DISEASE
     Dosage: AS REQUIRED
  2. SEREVENT MENTHOL [Concomitant]
  3. SALMETEROL DISCUS [Concomitant]
  4. PRILOSEC [Concomitant]
  5. SIMVASTATIN [Concomitant]
  6. GLYBURIDE [Concomitant]

REACTIONS (1)
  - DRUG INEFFECTIVE [None]
